FAERS Safety Report 7824590-1 (Version None)
Quarter: 2011Q4

REPORT INFORMATION
  Report Type: 
  Country: None (occurrence: None)
  Receive Date: 20111019
  Receipt Date: 20111005
  Transmission Date: 20120403
  Serious: Yes (Hospitalization, Other)
  Sender: FDA-Public Use
  Company Number: US-ELI_LILLY_AND_COMPANY-US201011000665

PATIENT
  Sex: Female

DRUGS (9)
  1. COUMADIN [Concomitant]
     Dosage: UNK, UNKNOWN
  2. FORTEO [Suspect]
     Dosage: 20 UG, DAILY (1/D)
  3. FORTEO [Suspect]
     Dosage: 20 UG, QD
  4. FORTEO [Suspect]
     Indication: OSTEOPOROSIS
     Dosage: 20 UG, DAILY (1/D)
     Dates: start: 20101018
  5. FORTEO [Suspect]
     Dosage: 20 UG, DAILY (1/D)
  6. FORTEO [Suspect]
     Dosage: 20 UG, QD
  7. FORTEO [Suspect]
     Dosage: 20 UG, QD
  8. FORTEO [Suspect]
     Dosage: 20 UG, DAILY (1/D)
  9. ANALGESICS [Concomitant]
     Indication: PAIN

REACTIONS (20)
  - BONE PAIN [None]
  - SCAR EXCISION [None]
  - ARTHRITIS [None]
  - PAIN IN EXTREMITY [None]
  - SKIN DISCOMFORT [None]
  - VOMITING [None]
  - CONDITION AGGRAVATED [None]
  - BONE DISORDER [None]
  - INJECTION SITE HAEMATOMA [None]
  - MUSCLE SPASMS [None]
  - DEVICE MALFUNCTION [None]
  - PANCREATITIS [None]
  - ABDOMINAL PAIN [None]
  - MEDICATION ERROR [None]
  - INCORRECT DOSE ADMINISTERED [None]
  - BACK PAIN [None]
  - FATIGUE [None]
  - INCREASED TENDENCY TO BRUISE [None]
  - OSTEOCHONDROSIS [None]
  - ARTHRALGIA [None]
